FAERS Safety Report 22278110 (Version 1)
Quarter: 2023Q2

REPORT INFORMATION
  Report Type: Report from Study
  Country: CA (occurrence: CA)
  Receive Date: 20230503
  Receipt Date: 20230503
  Transmission Date: 20230722
  Serious: Yes (Other)
  Sender: FDA-Public Use
  Company Number: CA-002147023-NVSC2023CA093527

PATIENT
  Age: 32 Year
  Sex: Female

DRUGS (1)
  1. HYRIMOZ [Suspect]
     Active Substance: ADALIMUMAB-ADAZ
     Indication: Crohn^s disease
     Dosage: 40 MG, QW
     Route: 058
     Dates: start: 20211012

REACTIONS (5)
  - Crohn^s disease [Unknown]
  - Pain [Unknown]
  - Fatigue [Unknown]
  - Eating disorder [Unknown]
  - Off label use [Unknown]
